FAERS Safety Report 9390018 (Version 2)
Quarter: 2013Q3

REPORT INFORMATION
  Report Type: Spontaneous
  Country: US (occurrence: US)
  Receive Date: 20130708
  Receipt Date: 20130904
  Transmission Date: 20140515
  Serious: No
  Sender: FDA-Public Use
  Company Number: US-AMGEN-USASP2013043753

PATIENT
  Age: 50 Year
  Sex: Female
  Weight: 94.79 kg

DRUGS (1)
  1. ENBREL [Suspect]
     Indication: RHEUMATOID ARTHRITIS
     Dosage: 50 MG, QWK
     Route: 058
     Dates: start: 20130226

REACTIONS (6)
  - Pain in extremity [Recovered/Resolved]
  - Oedema [Recovered/Resolved]
  - Dysgeusia [Not Recovered/Not Resolved]
  - Tenderness [Not Recovered/Not Resolved]
  - Upper respiratory tract infection [Recovered/Resolved]
  - Bronchitis [Recovered/Resolved]
